FAERS Safety Report 17250867 (Version 1)
Quarter: 2019Q4

REPORT INFORMATION
  Report Type: Spontaneous
  Country: US (occurrence: US)
  Receive Date: 20191214
  Receipt Date: 20191214
  Transmission Date: 20200122
  Serious: No
  Sender: FDA-Public Use
  Company Number: None

PATIENT
  Age: 91 Year
  Sex: Female
  Weight: 61.23 kg

DRUGS (7)
  1. PEPCID [Concomitant]
     Active Substance: FAMOTIDINE
  2. LYSINE [Concomitant]
     Active Substance: LYSINE
  3. BETA CAROTENE. [Concomitant]
     Active Substance: BETA CAROTENE
  4. VITAMIN E [Concomitant]
     Active Substance: .ALPHA.-TOCOPHEROL
  5. BIOTIN [Concomitant]
     Active Substance: BIOTIN
  6. LEVOFLOXACIN 500MG TABLET 10 DAY SUPPLY [Suspect]
     Active Substance: LEVOFLOXACIN
     Indication: PNEUMONIA
     Route: 048
     Dates: start: 20190611, end: 20190620
  7. CHLORTRIMETON [Concomitant]
     Active Substance: CHLORPHENIRAMINE MALEATE

REACTIONS (5)
  - Insomnia [None]
  - Gastrointestinal disorder [None]
  - Constipation [None]
  - Abdominal distension [None]
  - Respiratory disorder [None]
